FAERS Safety Report 9506345 (Version 1)
Quarter: 2013Q1

REPORT INFORMATION
  Report Type: Spontaneous
  Country: US (occurrence: None)
  Receive Date: 20130305
  Receipt Date: 20130305
  Transmission Date: 20140127
  Serious: Yes (Other)
  Sender: FDA-Public Use
  Company Number: 163-21880-12050355

PATIENT
  Age: 74 Year
  Sex: Female

DRUGS (1)
  1. REVLIMID (LENALIDOMIDE) [Suspect]
     Indication: MYELODYSPLASTIC SYNDROME
     Route: 048
     Dates: start: 20120427, end: 20120427

REACTIONS (6)
  - Drug hypersensitivity [None]
  - Throat irritation [None]
  - Pruritus [None]
  - Rash generalised [None]
  - Burning sensation [None]
  - Pain [None]
